FAERS Safety Report 6333332-0 (Version None)
Quarter: 2009Q3

REPORT INFORMATION
  Report Type: 
  Country: None (occurrence: None)
  Receive Date: 20090828
  Receipt Date: 20090827
  Transmission Date: 20100115
  Serious: No
  Sender: FDA-Public Use
  Company Number: US-B.I. PHARMACEUTICALS,INC./RIDGEFIELD-2009-BP-10134BP

PATIENT
  Sex: Male

DRUGS (2)
  1. COMBIVENT [Suspect]
     Dosage: 4 PUF
     Dates: start: 20090611, end: 20090824
  2. VESICARE [Concomitant]

REACTIONS (4)
  - RASH [None]
  - SWOLLEN TONGUE [None]
  - TONGUE COATED [None]
  - VISION BLURRED [None]
